FAERS Safety Report 17054471 (Version 1)
Quarter: 2019Q4

REPORT INFORMATION
  Report Type: Spontaneous
  Country: US (occurrence: US)
  Receive Date: 20191022
  Receipt Date: 20191022
  Transmission Date: 20200122
  Serious: Yes (Death)
  Sender: FDA-Public Use
  Company Number: None

PATIENT
  Age: 71 Year
  Sex: Female

DRUGS (6)
  1. TADALAFIL      20MG [Suspect]
     Active Substance: TADALAFIL
     Indication: PULMONARY ARTERIAL HYPERTENSION
     Route: 048
     Dates: start: 20180831
  2. VITAMIN B12 [Concomitant]
     Active Substance: CYANOCOBALAMIN
  3. HYDROCO/APAP [Concomitant]
     Active Substance: ACETAMINOPHEN\HYDROCODONE
  4. PROTEIN [Concomitant]
     Active Substance: PROTEIN
  5. MIDODRINE [Concomitant]
     Active Substance: MIDODRINE
  6. WHEY [Concomitant]
     Active Substance: WHEY

REACTIONS (1)
  - Death [None]

NARRATIVE: CASE EVENT DATE: 20191001
